FAERS Safety Report 21421203 (Version 3)
Quarter: 2023Q1

REPORT INFORMATION
  Report Type: Spontaneous
  Country: US (occurrence: US)
  Receive Date: 20221007
  Receipt Date: 20230228
  Transmission Date: 20230418
  Serious: No
  Sender: FDA-Public Use
  Company Number: US-UCBSA-2022052119

PATIENT
  Age: 20 Year
  Sex: Male
  Weight: 104 kg

DRUGS (1)
  1. FINTEPLA [Suspect]
     Active Substance: FENFLURAMINE
     Indication: Product used for unknown indication
     Dosage: 5.9 MILLILITER, 2X/DAY (BID)

REACTIONS (1)
  - Echocardiogram abnormal [Unknown]

NARRATIVE: CASE EVENT DATE: 20220211
